FAERS Safety Report 10578865 (Version 1)
Quarter: 2014Q4

REPORT INFORMATION
  Report Type: Spontaneous
  Country: US (occurrence: US)
  Receive Date: 20141112
  Receipt Date: 20141112
  Transmission Date: 20150529
  Serious: Yes (Hospitalization)
  Sender: FDA-Public Use
  Company Number: US-B.I. PHARMACEUTICALS,INC./RIDGEFIELD-2014-BI-53494BP

PATIENT
  Sex: Male

DRUGS (11)
  1. PURITAN^S PRIDE MAGNESIUM [Concomitant]
     Indication: SUPPLEMENTATION THERAPY
     Route: 048
  2. PURITAN^S PRIDE VITAMIN A + D [Concomitant]
     Indication: SUPPLEMENTATION THERAPY
     Dosage: FORMULATION: RAPID RELEASE SOFTGELS; DOSE: 10000 + 400IU
     Route: 048
  3. PURITAN^S PRIDE CINNAMON WITH HIGH POTENCY CHROMIUM COMPLEX [Concomitant]
     Indication: SUPPLEMENTATION THERAPY
     Route: 048
  4. PURITAN^S PRIDE ACETYL L-CARNITINE [Concomitant]
     Indication: SUPPLEMENTATION THERAPY
     Dosage: FORMULATION: RAPID-RELEASE SOFTGELS
     Route: 048
  5. CHONDROITIN SULFATE (BOVINE)\GLUCOSAMINE SULFATE [Concomitant]
     Active Substance: CHONDROITIN SULFATE (BOVINE)\GLUCOSAMINE SULFATE
     Indication: SUPPLEMENTATION THERAPY
     Dosage: DOSE PER APPLICATION: 250MG/200MG
     Route: 048
  6. PURITAN^S PRIDE SHARK CARTILAGE [Concomitant]
     Indication: SUPPLEMENTATION THERAPY
     Route: 048
  7. PRADAXA [Suspect]
     Active Substance: DABIGATRAN ETEXILATE MESYLATE
     Indication: DRUG THERAPY
     Route: 048
  8. PURITAN^S PRIDE POTASSIUM [Concomitant]
     Indication: SUPPLEMENTATION THERAPY
     Dosage: FORMULATION: CAPLETS
     Route: 048
  9. PURITAN^S PRIDE EVENING PRIMROSE OIL [Concomitant]
     Indication: SUPPLEMENTATION THERAPY
     Route: 048
  10. PURITAN^S PRIDE GLUCOSAMINE WITH SHARK CARTILAGE [Concomitant]
     Indication: SUPPLEMENTATION THERAPY
     Route: 048
  11. PURITAN^S PRIDE GOJI [Concomitant]
     Indication: SUPPLEMENTATION THERAPY
     Route: 048

REACTIONS (2)
  - Dehydration [Recovered/Resolved]
  - Internal haemorrhage [Recovered/Resolved]

NARRATIVE: CASE EVENT DATE: 20140727
